FAERS Safety Report 8452694-1 (Version None)
Quarter: 2012Q2

REPORT INFORMATION
  Report Type: 
  Country: None (occurrence: None)
  Receive Date: 20120620
  Receipt Date: 20120504
  Transmission Date: 20120825
  Serious: No
  Sender: FDA-Public Use
  Company Number: US-VERTEX PHARMACEUTICALS INC.-AE-2012-005848

PATIENT
  Sex: Male
  Weight: 66.738 kg

DRUGS (9)
  1. PEGASYS [Concomitant]
     Indication: HEPATITIS C
     Route: 058
     Dates: start: 20120227, end: 20120416
  2. INCIVEK [Suspect]
     Indication: HEPATITIS C
     Route: 048
     Dates: start: 20120227, end: 20120422
  3. INCIVEK [Suspect]
     Route: 048
     Dates: end: 20120504
  4. RIBAVIRIN [Concomitant]
     Indication: HEPATITIS C
     Route: 048
     Dates: start: 20120227
  5. ATRIPLA [Concomitant]
     Indication: HIV INFECTION
     Route: 048
  6. PEGASYS [Concomitant]
     Route: 058
     Dates: start: 20120416
  7. ASCORBIC ACID [Concomitant]
     Route: 048
  8. MULTIPLE VITAMIN [Concomitant]
     Route: 048
  9. VITAMIN B COMPLEX CAP [Concomitant]
     Route: 048

REACTIONS (2)
  - OFF LABEL USE [None]
  - RASH MACULO-PAPULAR [None]
